FAERS Safety Report 23486733 (Version 1)
Quarter: 2024Q1

REPORT INFORMATION
  Report Type: Spontaneous
  Country: CN (occurrence: CN)
  Receive Date: 20240206
  Receipt Date: 20240206
  Transmission Date: 20240410
  Serious: Yes (Other)
  Sender: FDA-Public Use
  Company Number: CN-SANDOZ-SDZ2024CN011682

PATIENT
  Age: 75 Year
  Sex: Female
  Weight: 62 kg

DRUGS (2)
  1. VORICONAZOLE [Suspect]
     Active Substance: VORICONAZOLE
     Indication: Pathogen resistance
     Dosage: 400 MG, QD
     Route: 041
     Dates: start: 20240105, end: 20240108
  2. VORICONAZOLE [Suspect]
     Active Substance: VORICONAZOLE
     Indication: Pathogen resistance
     Dosage: 200 MG, Q12H, TABLET
     Route: 048
     Dates: start: 20240105, end: 20240108

REACTIONS (3)
  - Cataract [Unknown]
  - Visual impairment [Recovering/Resolving]
  - Vision blurred [Unknown]

NARRATIVE: CASE EVENT DATE: 20240107
